FAERS Safety Report 7774599-1 (Version None)
Quarter: 2011Q3

REPORT INFORMATION
  Report Type: 
  Country: None (occurrence: None)
  Receive Date: 20110923
  Receipt Date: 20110915
  Transmission Date: 20111222
  Serious: Yes (Other)
  Sender: FDA-Public Use
  Company Number: US-ROCHE-804227

PATIENT
  Age: 68 Year
  Sex: Male

DRUGS (5)
  1. ASPIRIN [Concomitant]
  2. RENESE [Concomitant]
  3. NERVEX [Concomitant]
     Dosage: REPORTED AS NERVASE
  4. BONIVA [Suspect]
     Indication: OSTEOPOROSIS
     Dosage: FREQUENCY: MONTHLY, TAKEN FOR 2 MONTHS
     Route: 048
  5. DEPAKOTE [Concomitant]

REACTIONS (1)
  - KNEE ARTHROPLASTY [None]
